FAERS Safety Report 21816588 (Version 1)
Quarter: 2023Q1

REPORT INFORMATION
  Report Type: Spontaneous
  Country: US (occurrence: None)
  Receive Date: 20230104
  Receipt Date: 20230104
  Transmission Date: 20230418
  Serious: No
  Sender: FDA-Public Use
  Company Number: None

PATIENT
  Age: 69 Year
  Sex: Male
  Weight: 85.8 kg

DRUGS (3)
  1. DEXAMETHASONE [Suspect]
     Active Substance: DEXAMETHASONE
     Dates: end: 20190710
  2. LENALIDOMIDE [Suspect]
     Active Substance: LENALIDOMIDE
     Dates: end: 20210111
  3. VELCADE [Suspect]
     Active Substance: BORTEZOMIB
     Dates: end: 20190608

REACTIONS (3)
  - Neoplasm malignant [None]
  - Mantle cell lymphoma [None]
  - Marrow hyperplasia [None]

NARRATIVE: CASE EVENT DATE: 20210122
